FAERS Safety Report 24385733 (Version 3)
Quarter: 2024Q4

REPORT INFORMATION
  Report Type: Report from Study
  Country: US (occurrence: US)
  Receive Date: 20241001
  Receipt Date: 20241107
  Transmission Date: 20250115
  Serious: Yes (Other)
  Sender: BAYER HEALTHCARE PHARMACEUTICALS INC.
  Company Number: US-BAYER-2024A132115

PATIENT
  Age: 73 Year
  Sex: Female
  Weight: 80.272 kg

DRUGS (28)
  1. ADEMPAS [Suspect]
     Active Substance: RIOCIGUAT
     Indication: Pulmonary arterial hypertension
     Dosage: UNK
     Dates: start: 20240905
  2. ADEMPAS [Suspect]
     Active Substance: RIOCIGUAT
     Indication: Product used for unknown indication
     Dosage: 1.0 MG, TID
     Route: 048
  3. ADEMPAS [Suspect]
     Active Substance: RIOCIGUAT
     Indication: Pulmonary arterial hypertension
     Dosage: UNK
     Dates: start: 2024, end: 2024
  4. VERQUVO [Suspect]
     Active Substance: VERICIGUAT
     Indication: Product used for unknown indication
  5. TYVASO DPI [Suspect]
     Active Substance: TREPROSTINIL
     Indication: Pulmonary arterial hypertension
     Dosage: 32 ?G, BID
     Dates: start: 202409, end: 202409
  6. TYVASO DPI [Suspect]
     Active Substance: TREPROSTINIL
     Indication: Pulmonary arterial hypertension
     Dosage: 16 ?G, QID
     Dates: start: 20240919
  7. TADALAFIL [Suspect]
     Active Substance: TADALAFIL
     Indication: Product used for unknown indication
     Dosage: UNK
     Dates: end: 2024
  8. ENTRESTO [Suspect]
     Active Substance: SACUBITRIL\VALSARTAN
     Indication: Product used for unknown indication
  9. CLONIDINE HYDROCHLORIDE [Concomitant]
     Active Substance: CLONIDINE HYDROCHLORIDE
  10. OMEGA 3 [Concomitant]
     Active Substance: CAPSAICIN
  11. FIBER LAX [Concomitant]
     Active Substance: CALCIUM POLYCARBOPHIL
  12. CARVEDILOL [Concomitant]
     Active Substance: CARVEDILOL
  13. ROSUVASTATIN CALCIUM [Concomitant]
     Active Substance: ROSUVASTATIN CALCIUM
  14. PROTONIX [Concomitant]
     Active Substance: PANTOPRAZOLE SODIUM
  15. OPSUMIT [Concomitant]
     Active Substance: MACITENTAN
  16. HYDROXYCHLOROQUINE SULFATE [Concomitant]
     Active Substance: HYDROXYCHLOROQUINE SULFATE
  17. LEVOTHYROXINE SODIUM [Concomitant]
     Active Substance: LEVOTHYROXINE SODIUM
  18. MELATONIN [Concomitant]
     Active Substance: MELATONIN
  19. IRON [Concomitant]
     Active Substance: IRON
  20. TRAZODONE HCL [Concomitant]
     Active Substance: TRAZODONE HYDROCHLORIDE
  21. TYVASO [Concomitant]
     Active Substance: TREPROSTINIL
  22. HYDRALAZINE HCL [Concomitant]
     Active Substance: HYDRALAZINE HYDROCHLORIDE
  23. ASPIRIN [Concomitant]
     Active Substance: ASPIRIN
  24. COLACE [Concomitant]
     Active Substance: DOCUSATE SODIUM
  25. CRESTOR [Concomitant]
     Active Substance: ROSUVASTATIN CALCIUM
  26. COREG [Concomitant]
     Active Substance: CARVEDILOL
  27. COLCHICINE [Concomitant]
     Active Substance: COLCHICINE
  28. TYLENOL [Concomitant]
     Active Substance: ACETAMINOPHEN

REACTIONS (28)
  - Hypotension [None]
  - Pain [None]
  - Nephrolithiasis [None]
  - Fatigue [None]
  - Asthenia [None]
  - Cough [None]
  - Chest pain [None]
  - Feeling abnormal [None]
  - Throat irritation [None]
  - Heart rate increased [None]
  - Faeces discoloured [None]
  - Renal pain [None]
  - Back pain [Not Recovered/Not Resolved]
  - Neck pain [Recovered/Resolved]
  - Vision blurred [Recovering/Resolving]
  - Joint stiffness [Recovered/Resolved]
  - Blood urine present [None]
  - Illness [None]
  - Joint swelling [None]
  - Fatigue [None]
  - Hypertension [None]
  - Blood pressure fluctuation [Recovered/Resolved]
  - Diarrhoea [Not Recovered/Not Resolved]
  - Palpitations [Recovered/Resolved]
  - Vomiting [Not Recovered/Not Resolved]
  - Headache [Recovering/Resolving]
  - Head discomfort [Recovering/Resolving]
  - Dizziness [None]

NARRATIVE: CASE EVENT DATE: 20240910
